FAERS Safety Report 26030559 (Version 2)
Quarter: 2025Q4

REPORT INFORMATION
  Report Type: Spontaneous
  Country: US (occurrence: US)
  Receive Date: 20251112
  Receipt Date: 20251126
  Transmission Date: 20260118
  Serious: No
  Sender: ROCHE
  Company Number: US-ROCHE-10000426410

PATIENT
  Age: 18 Year
  Sex: Female
  Weight: 53.07 kg

DRUGS (6)
  1. ACTEMRA [Suspect]
     Active Substance: TOCILIZUMAB
     Indication: Rheumatoid arthritis
     Dosage: EVERY OTHER FRIDAY
     Route: 058
     Dates: start: 20251010
  2. HUMIRA [Concomitant]
     Active Substance: ADALIMUMAB
     Indication: Rheumatoid arthritis
     Dosage: 40MG/0.4ML
     Route: 058
     Dates: start: 202503, end: 20250808
  3. METHOTREXATE [Concomitant]
     Active Substance: METHOTREXATE
     Indication: Inflammation
     Dosage: 10 OF 2.5MG TABLETS, ONCE A WEEK
     Route: 048
     Dates: start: 202410, end: 202503
  4. LEUCOVORIN [Concomitant]
     Active Substance: LEUCOVORIN\LEUCOVORIN CALCIUM
     Dosage: 24 HOURS AFTER TAKING METHOTREXATE
     Route: 048
     Dates: start: 202410, end: 202503
  5. LORATADINE [Concomitant]
     Active Substance: LORATADINE
     Indication: Urticaria
     Dosage: AS NEEDED
     Route: 048
     Dates: start: 2025, end: 2025
  6. CETIRIZINE [Concomitant]
     Active Substance: CETIRIZINE HYDROCHLORIDE
     Indication: Urticaria
     Dosage: EVERY DAY AND EVERY NIGHT
     Route: 048
     Dates: start: 2025

REACTIONS (6)
  - Device difficult to use [Unknown]
  - Product dose omission issue [Unknown]
  - Injection site pain [Recovered/Resolved]
  - Pain [Not Recovered/Not Resolved]
  - Device malfunction [Unknown]
  - Needle issue [Unknown]

NARRATIVE: CASE EVENT DATE: 20251024
